FAERS Safety Report 15159954 (Version 1)
Quarter: 2018Q3

REPORT INFORMATION
  Report Type: Spontaneous
  Country: ES (occurrence: ES)
  Receive Date: 20180718
  Receipt Date: 20180718
  Transmission Date: 20181010
  Serious: Yes (Hospitalization)
  Sender: FDA-Public Use
  Company Number: ES-SA-2018SA185675

PATIENT
  Age: 63 Year
  Sex: Female
  Weight: 135 kg

DRUGS (1)
  1. LANTUS [Suspect]
     Active Substance: INSULIN GLARGINE
     Indication: TYPE 2 DIABETES MELLITUS
     Route: 058

REACTIONS (3)
  - Limb injury [Recovered/Resolved]
  - Drug ineffective [Unknown]
  - Hyperglycaemia [Recovering/Resolving]
